FAERS Safety Report 12265247 (Version 1)
Quarter: 2016Q2

REPORT INFORMATION
  Report Type: Spontaneous
  Country: CA (occurrence: CA)
  Receive Date: 20160413
  Receipt Date: 20160413
  Transmission Date: 20160815
  Serious: Yes (Life-Threatening, Hospitalization, Other)
  Sender: FDA-Public Use
  Company Number: CA-AMGEN-CANSP2016045675

PATIENT
  Age: 69 Year
  Sex: Male
  Weight: 86 kg

DRUGS (5)
  1. ATORVASTATIN CALCIUM. [Concomitant]
     Active Substance: ATORVASTATIN CALCIUM
     Dosage: UNK
  2. LORAZEPAM. [Concomitant]
     Active Substance: LORAZEPAM
     Dosage: UNK
  3. NEUPOGEN [Suspect]
     Active Substance: FILGRASTIM
     Indication: NEUTROPENIA
     Dosage: 300 MUG, QD, FOR SEVEN DAYS
     Route: 058
  4. ACETYLSALICYLIC ACID [Concomitant]
     Active Substance: ASPIRIN
     Dosage: UNK
  5. TRANDOLAPRIL. [Concomitant]
     Active Substance: TRANDOLAPRIL
     Dosage: UNK
     Route: 065

REACTIONS (10)
  - Pleural effusion [Recovering/Resolving]
  - Platelet count decreased [Unknown]
  - Blood lactate dehydrogenase increased [Recovering/Resolving]
  - Blood glucose increased [Recovering/Resolving]
  - Oedema peripheral [Recovering/Resolving]
  - Pruritus [Recovering/Resolving]
  - Gamma-glutamyltransferase increased [Unknown]
  - Capillary leak syndrome [Recovering/Resolving]
  - Ascites [Recovering/Resolving]
  - Blood alkaline phosphatase increased [Recovering/Resolving]
